FAERS Safety Report 17600349 (Version 1)
Quarter: 2020Q1

REPORT INFORMATION
  Report Type: Spontaneous
  Country: IT (occurrence: IT)
  Receive Date: 20200330
  Receipt Date: 20200330
  Transmission Date: 20200409
  Serious: Yes (Other)
  Sender: FDA-Public Use
  Company Number: IT-SA-2020SA077382

PATIENT
  Age: 40 Year
  Sex: Female

DRUGS (4)
  1. LANTUS [Suspect]
     Active Substance: INSULIN GLARGINE
     Indication: TYPE 1 DIABETES MELLITUS
     Dosage: 12 IU, QD
     Route: 058
     Dates: start: 20200101
  2. LANTUS [Interacting]
     Active Substance: INSULIN GLARGINE
     Dosage: DOSE REDUCED
  3. INSULIN LISPRO [Interacting]
     Active Substance: INSULIN LISPRO
     Indication: TYPE 1 DIABETES MELLITUS
     Dosage: 16 IU, QD
     Route: 058
     Dates: start: 20200101
  4. INSULIN LISPRO [Interacting]
     Active Substance: INSULIN LISPRO
     Dosage: DOSE REDUCED

REACTIONS (4)
  - Tachycardia [Recovering/Resolving]
  - Paraesthesia [Recovering/Resolving]
  - Hypoglycaemia [Recovering/Resolving]
  - Drug interaction [Unknown]

NARRATIVE: CASE EVENT DATE: 20200210
